FAERS Safety Report 25111672 (Version 1)
Quarter: 2025Q1

REPORT INFORMATION
  Report Type: Spontaneous
  Country: US (occurrence: None)
  Receive Date: 20250320
  Receipt Date: 20250320
  Transmission Date: 20250408
  Serious: Yes (Other)
  Sender: FDA-CTU
  Company Number: None

PATIENT
  Age: 45 Year
  Sex: Female
  Weight: 65.77 kg

DRUGS (9)
  1. PURIFIED CORTROPHIN GEL [Suspect]
     Active Substance: CORTICOTROPIN
     Indication: Multiple sclerosis
     Dosage: FREQUENCY : DAILY;?
     Route: 058
     Dates: start: 20250319
  2. Tysabri Intravenous Concentrate 300 [Concomitant]
  3. Neurontin Oral Capsule 400MG [Concomitant]
  4. Cymbalta Oral Capsule Delayed Relea [Concomitant]
  5. Lisinopril Oral Tablet 20 MG [Concomitant]
  6. Baclofen Oral Tablet 10 MG [Concomitant]
  7. VITAMIN D [Concomitant]
     Active Substance: VITAMIN D NOS
  8. VITAMIN B12 [Concomitant]
     Active Substance: CYANOCOBALAMIN
  9. AMITRIPTYLINE HYDROCHLORIDE [Concomitant]
     Active Substance: AMITRIPTYLINE HYDROCHLORIDE

REACTIONS (4)
  - Hypoaesthesia [None]
  - Fatigue [None]
  - Pain [None]
  - Dizziness [None]

NARRATIVE: CASE EVENT DATE: 20250320
